FAERS Safety Report 4790723-7 (Version None)
Quarter: 2005Q4

REPORT INFORMATION
  Report Type: 
  Country: None (occurrence: None)
  Receive Date: 20051005
  Receipt Date: 20050916
  Transmission Date: 20060501
  Serious: Yes (Disabling, Other)
  Sender: FDA-Public Use
  Company Number: USA0509108321

PATIENT
  Age: 63 Year
  Sex: Female

DRUGS (2)
  1. HUMALOG [Suspect]
     Dates: start: 20000101, end: 20040101
  2. NOVOLIN 70/30 [Concomitant]

REACTIONS (5)
  - ABASIA [None]
  - BLOOD GLUCOSE FLUCTUATION [None]
  - DIABETES MELLITUS INADEQUATE CONTROL [None]
  - NEUROPATHIC ARTHROPATHY [None]
  - PHARMACEUTICAL PRODUCT COMPLAINT [None]
